FAERS Safety Report 4845170-6 (Version None)
Quarter: 2005Q4

REPORT INFORMATION
  Report Type: 
  Country: None (occurrence: None)
  Receive Date: 20051115
  Receipt Date: 20050923
  Transmission Date: 20060501
  Serious: No
  Sender: FDA-Public Use
  Company Number: 419086

PATIENT
  Age: 57 Year
  Sex: Male

DRUGS (8)
  1. PEGASYS [Suspect]
     Indication: HEPATITIS C VIRUS
     Dosage: 180 MCG OTHER
     Route: 050
     Dates: start: 20050901
  2. COPEGUS [Suspect]
     Indication: HEPATITIS C VIRUS
     Dosage: 600 MG 2 PER DAY ORAL
     Route: 048
     Dates: start: 20050901
  3. LEVOTHROID [Concomitant]
  4. HYDROCORTONE (HYDROCORTISONE) [Concomitant]
  5. CLONAZEPAM [Concomitant]
  6. MIRAPEX [Concomitant]
  7. EFFEXOR [Concomitant]
  8. HYDROCHLOORTHIAZIDE (HYDROCHCLOROTHIAZIDE) [Concomitant]

REACTIONS (4)
  - DEHYDRATION [None]
  - DIZZINESS [None]
  - NAUSEA [None]
  - VOMITING [None]
